FAERS Safety Report 19877271 (Version 1)
Quarter: 2021Q3

REPORT INFORMATION
  Report Type: Spontaneous
  Country: CA (occurrence: CA)
  Receive Date: 20210923
  Receipt Date: 20210923
  Transmission Date: 20211014
  Serious: Yes (Other)
  Sender: FDA-Public Use
  Company Number: CA-TEVA-2021-CA-1956382

PATIENT
  Age: 62 Year
  Sex: Female
  Weight: 52 kg

DRUGS (4)
  1. VITAMIN D [Concomitant]
     Active Substance: VITAMIN D NOS
     Route: 065
  2. MESALAZINE [Suspect]
     Active Substance: MESALAMINE
     Indication: CROHN^S DISEASE
     Dosage: 400 MILLIGRAM DAILY;
     Route: 048
  3. MULTIVITAMINS WITH MINERALS [Concomitant]
     Active Substance: MINERALS\VITAMINS
     Route: 065
  4. PENTASA [Suspect]
     Active Substance: MESALAMINE
     Indication: CROHN^S DISEASE
     Dosage: 500 MILLIGRAM DAILY;
     Route: 065

REACTIONS (13)
  - Pericardial effusion [Recovering/Resolving]
  - Systolic dysfunction [Recovering/Resolving]
  - Chest pain [Recovering/Resolving]
  - Left ventricular dysfunction [Recovering/Resolving]
  - Ejection fraction decreased [Recovering/Resolving]
  - Cardiomegaly [Recovering/Resolving]
  - Left ventricular dilatation [Recovering/Resolving]
  - Pulmonary oedema [Recovering/Resolving]
  - Cardiac failure [Recovering/Resolving]
  - Cardiomyopathy [Recovering/Resolving]
  - Ventricular hypokinesia [Recovering/Resolving]
  - Dyspnoea [Recovering/Resolving]
  - Myocarditis [Recovering/Resolving]
